FAERS Safety Report 9251697 (Version 1)
Quarter: 2013Q2

REPORT INFORMATION
  Report Type: Spontaneous
  Country: NZ (occurrence: NZ)
  Receive Date: 20130424
  Receipt Date: 20130424
  Transmission Date: 20140414
  Serious: Yes (Other)
  Sender: FDA-Public Use
  Company Number: PHHY2013NZ039415

PATIENT
  Sex: Male

DRUGS (1)
  1. TASIGNA [Suspect]
     Indication: CHRONIC MYELOID LEUKAEMIA

REACTIONS (6)
  - Prostate cancer [Unknown]
  - Second primary malignancy [Unknown]
  - Somnolence [Unknown]
  - Urine flow decreased [Unknown]
  - Fatigue [Unknown]
  - Nocturia [Unknown]
